FAERS Safety Report 7704611-7 (Version None)
Quarter: 2011Q3

REPORT INFORMATION
  Report Type: 
  Country: None (occurrence: None)
  Receive Date: 20110823
  Receipt Date: 20110815
  Transmission Date: 20111222
  Serious: Yes (Death)
  Sender: FDA-Public Use
  Company Number: US-GLAXOSMITHKLINE-A0937826A

PATIENT
  Age: 50 Year
  Sex: Male

DRUGS (5)
  1. BLOOD PRESSURE MEDICATION [Concomitant]
  2. BENADRYL [Concomitant]
  3. VOTRIENT [Suspect]
     Indication: RENAL CANCER
     Dosage: 800MG PER DAY
     Route: 048
  4. LISINOPRIL [Concomitant]
  5. TYLENOL-500 [Concomitant]

REACTIONS (4)
  - RENAL CANCER [None]
  - ADRENAL CARCINOMA [None]
  - FATIGUE [None]
  - DRUG INEFFECTIVE [None]
